FAERS Safety Report 4800306-8 (Version None)
Quarter: 2005Q4

REPORT INFORMATION
  Report Type: 
  Country: None (occurrence: None)
  Receive Date: 20051013
  Receipt Date: 20051004
  Transmission Date: 20060501
  Serious: Yes (Death)
  Sender: FDA-Public Use
  Company Number: 2005-10-0164

PATIENT
  Age: 55 Year
  Sex: Female

DRUGS (1)
  1. INTRON A [Suspect]
     Indication: HEPATITIS C
     Dosage: 3 MU, INTRAMUSCULAR
     Route: 030
     Dates: start: 20050501, end: 20050601

REACTIONS (1)
  - SUBARACHNOID HAEMORRHAGE [None]
